FAERS Safety Report 11167946 (Version 1)
Quarter: 2015Q2

REPORT INFORMATION
  Report Type: Spontaneous
  Country: US (occurrence: US)
  Receive Date: 20150605
  Receipt Date: 20150605
  Transmission Date: 20150821
  Serious: Yes (Other)
  Sender: FDA-Public Use
  Company Number: US-PFIZER INC-2015187467

PATIENT
  Sex: Male
  Weight: 93 kg

DRUGS (3)
  1. NORVASC [Suspect]
     Active Substance: AMLODIPINE BESYLATE
     Indication: HYPERTENSION
     Dosage: 5 MG, 1X/DAY
     Dates: start: 201504
  2. COUMADIN [Suspect]
     Active Substance: WARFARIN SODIUM
     Dosage: 2.5 MG, 2X/DAY
  3. TESTOSTERONE CIPIONATE [Suspect]
     Active Substance: TESTOSTERONE
     Dosage: UNK

REACTIONS (2)
  - Sensory loss [Unknown]
  - Atrial fibrillation [Unknown]
